FAERS Safety Report 24172198 (Version 1)
Quarter: 2024Q3

REPORT INFORMATION
  Report Type: Report from Study
  Country: US (occurrence: US)
  Receive Date: 20240805
  Receipt Date: 20240805
  Transmission Date: 20241017
  Serious: Yes (Other)
  Sender: EMD SERONO INC
  Company Number: US-Merck Healthcare KGaA-2024041314

PATIENT
  Age: 42 Year
  Sex: Male

DRUGS (1)
  1. SEROSTIM [Suspect]
     Active Substance: SOMATROPIN
     Indication: Product used for unknown indication
     Route: 058
     Dates: start: 201403

REACTIONS (13)
  - Colorectal cancer [Unknown]
  - Pulmonary embolism [Unknown]
  - Schizoaffective disorder bipolar type [Unknown]
  - Thrombosis [Unknown]
  - Weight decreased [Unknown]
  - Liver abscess [Unknown]
  - Kidney infection [Unknown]
  - Anxiety [Unknown]
  - Depression [Unknown]
  - Insomnia [Unknown]
  - Coagulopathy [Unknown]
  - Abdominal distension [Unknown]
  - Glucose tolerance impaired [Unknown]
